FAERS Safety Report 8697076 (Version 3)
Quarter: 2013Q4

REPORT INFORMATION
  Report Type: Spontaneous
  Country: FR (occurrence: FR)
  Receive Date: 20120801
  Receipt Date: 20131105
  Transmission Date: 20140711
  Serious: Yes (Hospitalization, Other)
  Sender: FDA-Public Use
  Company Number: FR-009507513-1207FRA010291

PATIENT
  Age: 88 Year
  Sex: Male

DRUGS (9)
  1. ADROVANCE [Suspect]
     Dosage: UNK
     Route: 048
     Dates: end: 20120315
  2. ATACAND [Suspect]
     Dosage: UNK
     Route: 048
     Dates: end: 20120315
  3. JOSIR [Suspect]
     Dosage: UNK
     Route: 048
     Dates: end: 20120315
  4. LASILIX [Suspect]
     Route: 048
  5. IMOVANCE [Concomitant]
  6. PLAVIX [Concomitant]
  7. VIRLIX [Concomitant]
  8. CALCIDOSE [Concomitant]
  9. DAFALGAN [Concomitant]

REACTIONS (2)
  - Drug eruption [Not Recovered/Not Resolved]
  - Pemphigoid [Not Recovered/Not Resolved]
